FAERS Safety Report 8579262-5 (Version None)
Quarter: 2012Q3

REPORT INFORMATION
  Report Type: 
  Country: None (occurrence: None)
  Receive Date: 20120808
  Receipt Date: 20120606
  Transmission Date: 20120928
  Serious: Yes (Other)
  Sender: FDA-Public Use
  Company Number: FR-ROCHE-1096267

PATIENT
  Sex: Male

DRUGS (1)
  1. AVASTIN [Suspect]
     Indication: COLON CANCER
     Dates: start: 20080807, end: 20120504

REACTIONS (5)
  - DISEASE PROGRESSION [None]
  - NAUSEA [None]
  - ASTHENIA [None]
  - HYPERTENSION [None]
  - APHTHOUS STOMATITIS [None]
